FAERS Safety Report 5205508-7 (Version None)
Quarter: 2007Q1

REPORT INFORMATION
  Report Type: 
  Country: None (occurrence: None)
  Receive Date: 20070109
  Receipt Date: 20060721
  Transmission Date: 20070707
  Serious: Yes (Hospitalization)
  Sender: FDA-Public Use
  Company Number: 163-21880-06070695

PATIENT
  Age: 74 Year
  Sex: Male
  Weight: 152 kg

DRUGS (1)
  1. REVLIMID [Suspect]
     Indication: LEUKAEMIA PLASMACYTIC
     Dosage: 25 MG, 5 IN 1 D, ORAL
     Route: 048
     Dates: start: 20060713

REACTIONS (1)
  - GASTRIC NEOPLASM [None]
